FAERS Safety Report 8413971-3 (Version None)
Quarter: 2012Q2

REPORT INFORMATION
  Report Type: 
  Country: None (occurrence: None)
  Receive Date: 20120605
  Receipt Date: 20120524
  Transmission Date: 20120825
  Serious: Yes (Other)
  Sender: FDA-Public Use
  Company Number: GB-BRISTOL-MYERS SQUIBB COMPANY-16639585

PATIENT
  Age: 30 Year
  Sex: Male

DRUGS (2)
  1. EFAVIRENZ [Suspect]
     Indication: HIV INFECTION
  2. TRUVADA [Suspect]
     Indication: HIV INFECTION

REACTIONS (2)
  - LOSS OF CONSCIOUSNESS [None]
  - OVERDOSE [None]
